FAERS Safety Report 7434402-6 (Version None)
Quarter: 2011Q2

REPORT INFORMATION
  Report Type: 
  Country: None (occurrence: None)
  Receive Date: 20110425
  Receipt Date: 20110413
  Transmission Date: 20111010
  Serious: Yes (Hospitalization, Other)
  Sender: FDA-Public Use
  Company Number: PHEH2010US03489

PATIENT
  Sex: Female

DRUGS (1)
  1. ZELNORM [Suspect]
     Dosage: UNK
     Dates: start: 20060101

REACTIONS (8)
  - ATELECTASIS [None]
  - CHEST PAIN [None]
  - MYOCARDIAL INFARCTION [None]
  - PULMONARY CALCIFICATION [None]
  - PULMONARY CONGESTION [None]
  - INJURY [None]
  - CARDIOMEGALY [None]
  - DYSPNOEA [None]
